FAERS Safety Report 22348503 (Version 3)
Quarter: 2023Q2

REPORT INFORMATION
  Report Type: Spontaneous
  Country: US (occurrence: US)
  Receive Date: 20230522
  Receipt Date: 20230607
  Transmission Date: 20230721
  Serious: Yes (Other)
  Sender: FDA-Public Use
  Company Number: US-BEH-2023158831

PATIENT
  Age: 71 Year
  Sex: Female

DRUGS (1)
  1. HIZENTRA [Suspect]
     Active Substance: HUMAN IMMUNOGLOBULIN G
     Indication: Primary immunodeficiency syndrome
     Dosage: UNK
     Route: 058
     Dates: start: 2018

REACTIONS (22)
  - Systemic lupus erythematosus [Unknown]
  - Malabsorption from injection site [Unknown]
  - Injection site scar [Unknown]
  - Infusion site urticaria [Unknown]
  - Spider vein [Unknown]
  - Pain [Unknown]
  - Gait disturbance [Unknown]
  - Thrombosis [Unknown]
  - Swelling [Recovering/Resolving]
  - Intervertebral disc disorder [Unknown]
  - Hypoaesthesia [Unknown]
  - Tremor [Unknown]
  - Pain [Unknown]
  - Infusion site mass [Unknown]
  - Neuropathy peripheral [Unknown]
  - Therapy change [Unknown]
  - Pain [Unknown]
  - Swelling [Unknown]
  - Peripheral coldness [Unknown]
  - Infusion site nodule [Unknown]
  - No adverse event [Unknown]
  - Unevaluable event [Unknown]

NARRATIVE: CASE EVENT DATE: 20230510
